FAERS Safety Report 10143100 (Version 1)
Quarter: 2014Q2

REPORT INFORMATION
  Report Type: Spontaneous
  Country: HR (occurrence: HR)
  Receive Date: 20140430
  Receipt Date: 20140430
  Transmission Date: 20141212
  Serious: Yes (Hospitalization)
  Sender: FDA-Public Use
  Company Number: HR-TEVA-408018ISR

PATIENT
  Age: 68 Year
  Sex: Male
  Weight: 86 kg

DRUGS (6)
  1. CEFALIN [Suspect]
     Indication: HORDEOLUM
     Dosage: 2 GRAM DAILY;
     Route: 048
     Dates: start: 20130327, end: 20130329
  2. STATEX [Suspect]
     Indication: HYPERLIPIDAEMIA
     Dosage: 20 MILLIGRAM DAILY;
     Route: 048
     Dates: start: 20070208
  3. MARTEFARIN [Suspect]
     Indication: ATRIAL FIBRILLATION
     Dosage: 4.5 MILLIGRAM DAILY;
     Route: 048
     Dates: start: 20130312
  4. GLUCOPHAGE [Concomitant]
     Indication: DIABETES MELLITUS
     Dosage: 2 GRAM DAILY;
     Route: 048
     Dates: start: 20080331
  5. TRITAZIDE [Interacting]
     Indication: HYPERTENSION
     Dosage: 1 DOSAGE FORMS DAILY; 5MG RAMIPRIL + 25MG HYDROCHLOROTHIAZIDE
     Route: 048
     Dates: start: 20070206
  6. AMLOPIN [Concomitant]
     Indication: HYPERTENSION
     Dosage: 10 MILLIGRAM DAILY;
     Route: 048
     Dates: start: 20070206

REACTIONS (5)
  - Dermatitis [Recovered/Resolved]
  - Face oedema [Recovered/Resolved]
  - Skin erosion [Recovered/Resolved]
  - Scab [Recovered/Resolved]
  - Drug interaction [Recovered/Resolved]
